FAERS Safety Report 4515155-8 (Version None)
Quarter: 2004Q4

REPORT INFORMATION
  Report Type: 
  Country: None (occurrence: None)
  Receive Date: 20041129
  Receipt Date: 20041129
  Transmission Date: 20050328
  Serious: Yes (Hospitalization)
  Sender: FDA-Public Use
  Company Number: None

PATIENT
  Sex: Male
  Weight: 65 kg

DRUGS (6)
  1. DOCETAXEL [Suspect]
     Indication: PANCREATIC CARCINOMA
     Dosage: 25MG/M2  IV
     Route: 042
     Dates: start: 20040802
  2. IRINOTECAN [Suspect]
     Indication: PANCREATIC CARCINOMA
     Dosage: 50MG/M2  IV
     Route: 042
     Dates: start: 20040802
  3. LOVENOX [Suspect]
     Indication: PANCREATIC CARCINOMA
     Dosage: 40 MG SUB
     Dates: start: 20040802
  4. REGLAN [Concomitant]
  5. FLOMAX [Concomitant]
  6. LENTES [Concomitant]

REACTIONS (6)
  - DIARRHOEA [None]
  - EARLY SATIETY [None]
  - MARKEDLY REDUCED DIETARY INTAKE [None]
  - NAUSEA [None]
  - URINE OUTPUT DECREASED [None]
  - VOMITING [None]
